FAERS Safety Report 22389061 (Version 1)
Quarter: 2023Q2

REPORT INFORMATION
  Report Type: Spontaneous
  Country: US (occurrence: None)
  Receive Date: 20230530
  Receipt Date: 20230530
  Transmission Date: 20230721
  Serious: Yes (Other)
  Sender: FDA-Public Use
  Company Number: None

PATIENT
  Sex: Female

DRUGS (1)
  1. ELIQUIS [Suspect]
     Active Substance: APIXABAN

REACTIONS (4)
  - Palpitations [None]
  - Respiratory rate increased [None]
  - Heart rate increased [None]
  - Cardiac flutter [None]

NARRATIVE: CASE EVENT DATE: 20230101
